FAERS Safety Report 6339163-X (Version None)
Quarter: 2009Q3

REPORT INFORMATION
  Report Type: 
  Country: None (occurrence: None)
  Receive Date: 20090903
  Receipt Date: 20090827
  Transmission Date: 20100115
  Serious: Yes (Death, Other)
  Sender: FDA-Public Use
  Company Number: US-ELI_LILLY_AND_COMPANY-US200908006757

PATIENT
  Age: 56 Year
  Sex: Female

DRUGS (3)
  1. GEMZAR [Suspect]
     Indication: BREAST CANCER METASTATIC
     Dosage: 1000 MG/M2, UNK
     Dates: start: 20041109, end: 20060110
  2. HERCEPTIN [Concomitant]
     Indication: BREAST CANCER METASTATIC
     Dosage: 3 D/F, UNK
     Dates: start: 20041109
  3. CHEMOTHERAPEUTICS NOS [Concomitant]
     Indication: BREAST CANCER METASTATIC
     Dates: start: 20060101

REACTIONS (2)
  - DEATH [None]
  - PLEURAL EFFUSION [None]
